FAERS Safety Report 4953103-7 (Version None)
Quarter: 2006Q1

REPORT INFORMATION
  Report Type: 
  Country: None (occurrence: None)
  Receive Date: 20060320
  Receipt Date: 20060308
  Transmission Date: 20060701
  Serious: Yes (Hospitalization, Other)
  Sender: FDA-Public Use
  Company Number: 2005172430

PATIENT
  Sex: Male

DRUGS (8)
  1. LYRICA [Suspect]
     Indication: DIABETIC NEUROPATHY
     Dates: start: 20051201, end: 20051211
  2. VYTORIN [Concomitant]
  3. TOPROL XL (METORPORLOL SUCCINATE) [Concomitant]
  4. ALTACE [Concomitant]
  5. TRICOR [Concomitant]
  6. IMDUR [Concomitant]
  7. MONTELUKAST SODIUM (MONTELUKAST SODIUM) [Concomitant]
  8. NIACIN (NICTINIC ACID) [Concomitant]

REACTIONS (11)
  - ABNORMAL BEHAVIOUR [None]
  - ANAPHYLACTIC REACTION [None]
  - ASTHENIA [None]
  - CARDIO-RESPIRATORY ARREST [None]
  - CARDIOMEGALY [None]
  - CARDIOMYOPATHY [None]
  - CONFUSIONAL STATE [None]
  - DEPRESSED LEVEL OF CONSCIOUSNESS [None]
  - DYSPNOEA [None]
  - MENTAL STATUS CHANGES [None]
  - TREMOR [None]
